FAERS Safety Report 6253348-2 (Version None)
Quarter: 2009Q3

REPORT INFORMATION
  Report Type: 
  Country: None (occurrence: None)
  Receive Date: 20090701
  Receipt Date: 20090622
  Transmission Date: 20100115
  Serious: Yes (Other)
  Sender: FDA-Public Use
  Company Number: PHEH2009US05951

PATIENT
  Sex: Female

DRUGS (2)
  1. GENTEAL GEL (NVO) [Suspect]
     Dosage: 3 TO 4 TIMES DAILY
     Dates: start: 20020101
  2. GENTEAL GEL (NVO) [Suspect]

REACTIONS (7)
  - CATARACT [None]
  - DRUG INEFFECTIVE [None]
  - DRY EYE [None]
  - EYE DISORDER [None]
  - EYE INFECTION [None]
  - EYE IRRITATION [None]
  - OCULAR HYPERAEMIA [None]
